FAERS Safety Report 15202251 (Version 1)
Quarter: 2018Q3

REPORT INFORMATION
  Report Type: Spontaneous
  Country: IN (occurrence: IN)
  Receive Date: 20180726
  Receipt Date: 20180726
  Transmission Date: 20181010
  Serious: Yes (Life-Threatening)
  Sender: FDA-Public Use
  Company Number: IN-SA-2018SA201387

PATIENT
  Age: 60 Year
  Sex: Female

DRUGS (6)
  1. VOGLI [Concomitant]
     Dosage: UNK
  2. VOGLI [Concomitant]
     Indication: TYPE 2 DIABETES MELLITUS
     Dosage: 0.3/1 MG
     Route: 048
  3. TOUJEO [Suspect]
     Active Substance: INSULIN GLARGINE
     Indication: TYPE 2 DIABETES MELLITUS
     Dosage: 24 IU, UNK
     Route: 058
  4. TOUJEO [Suspect]
     Active Substance: INSULIN GLARGINE
     Dosage: 20 IU, UNK
     Route: 058
  5. APIDRA [Concomitant]
     Active Substance: INSULIN GLULISINE
     Indication: TYPE 2 DIABETES MELLITUS
     Dosage: 6?8?6
     Route: 058
  6. RECLIDE [Concomitant]
     Indication: TYPE 2 DIABETES MELLITUS
     Dosage: 60 MG, UNK
     Route: 048

REACTIONS (2)
  - Hypertension [Recovered/Resolved]
  - Hypoglycaemia [Recovered/Resolved]
